FAERS Safety Report 6266715-8 (Version None)
Quarter: 2009Q3

REPORT INFORMATION
  Report Type: 
  Country: None (occurrence: None)
  Receive Date: 20090714
  Receipt Date: 20090708
  Transmission Date: 20100115
  Serious: Yes (Other)
  Sender: FDA-Public Use
  Company Number: US-BIOGENIDEC-2009BI016019

PATIENT
  Age: 51 Year
  Sex: Male
  Weight: 81 kg

DRUGS (7)
  1. TYSABRI [Suspect]
     Indication: MULTIPLE SCLEROSIS
     Route: 042
     Dates: start: 20090227
  2. PROVIGIL [Concomitant]
     Indication: FATIGUE
     Route: 048
  3. VIAGRA [Concomitant]
     Indication: ERECTILE DYSFUNCTION
     Route: 048
  4. OMEPRAZOLE [Concomitant]
     Indication: GASTROOESOPHAGEAL REFLUX DISEASE
     Route: 048
  5. DIAZEPAM [Concomitant]
     Indication: VERTIGO
     Route: 048
  6. PROMETHEGAN [Concomitant]
     Indication: NAUSEA
  7. HYDROCORTISONE 2.5% [Concomitant]
     Indication: ANAL PRURITUS
     Route: 061
     Dates: start: 19990901

REACTIONS (1)
  - BASAL CELL CARCINOMA [None]
